FAERS Safety Report 14124057 (Version 1)
Quarter: 2017Q4

REPORT INFORMATION
  Report Type: Spontaneous
  Country: IT (occurrence: IT)
  Receive Date: 20171025
  Receipt Date: 20171025
  Transmission Date: 20180321
  Serious: Yes (Death, Hospitalization, Other)
  Sender: FDA-Public Use
  Company Number: IT-ACCORD-060206

PATIENT
  Age: 76 Year
  Sex: Male

DRUGS (3)
  1. AMINOACETIC ACID [Suspect]
     Active Substance: GLYCINE
     Indication: FATIGUE
  2. FUROSEMIDE. [Suspect]
     Active Substance: FUROSEMIDE
     Indication: PRODUCT USED FOR UNKNOWN INDICATION
  3. SODIUM CHLORIDE. [Suspect]
     Active Substance: SODIUM CHLORIDE
     Indication: PRODUCT USED FOR UNKNOWN INDICATION
     Dosage: NACL 3%

REACTIONS (2)
  - Hypernatraemia [Unknown]
  - Hyponatraemic encephalopathy [Fatal]
